FAERS Safety Report 12187958 (Version 14)
Quarter: 2020Q1

REPORT INFORMATION
  Report Type: Report from Study
  Country: CO (occurrence: CO)
  Receive Date: 20160317
  Receipt Date: 20200302
  Transmission Date: 20200409
  Serious: Yes (Hospitalization, Other)
  Sender: FDA-Public Use
  Company Number: PHHY2016CO034769

PATIENT
  Age: 54 Year
  Sex: Female
  Weight: 75 kg

DRUGS (8)
  1. LEVOTHYROXINE. [Concomitant]
     Active Substance: LEVOTHYROXINE
     Indication: PRODUCT USED FOR UNKNOWN INDICATION
     Route: 065
  2. SANDOSTATIN LAR DEPOT [Suspect]
     Active Substance: OCTREOTIDE ACETATE
     Indication: ACROMEGALY
     Dosage: 30 MG, QMO, (ONCE A MONTH)
     Route: 030
     Dates: start: 20070708, end: 201605
  3. LOSARTAN POTASICO 50 MG SANDOZ [Suspect]
     Active Substance: LOSARTAN
     Indication: HYPERTENSION
     Dosage: 50 MG, QD
     Route: 048
  4. CALCIUM + VIT D [Concomitant]
     Active Substance: CALCIUM\VITAMIN D
     Indication: PRODUCT USED FOR UNKNOWN INDICATION
     Route: 065
  5. LOSARTAN. [Concomitant]
     Active Substance: LOSARTAN
     Indication: HYPERTENSION
     Dosage: 50 MG, QD
     Route: 048
  6. SANDOSTATIN LAR DEPOT [Suspect]
     Active Substance: OCTREOTIDE ACETATE
     Dosage: 30 MG, (EVERY 40 DAYS)
     Route: 030
  7. SANDOSTATIN LAR DEPOT [Suspect]
     Active Substance: OCTREOTIDE ACETATE
     Dosage: 30 MG, QMO
     Route: 030
  8. METFORMIN HYDROCHLORIDE. [Suspect]
     Active Substance: METFORMIN HYDROCHLORIDE
     Indication: GLUCOSE TOLERANCE IMPAIRED
     Dosage: 500 MG, QD
     Route: 048

REACTIONS (25)
  - Nephrolithiasis [Unknown]
  - Muscle strain [Unknown]
  - Depression [Unknown]
  - Blood growth hormone increased [Unknown]
  - Limb mass [Unknown]
  - Insulin-like growth factor increased [Unknown]
  - Dyspepsia [Unknown]
  - Gallbladder disorder [Unknown]
  - Abdominal distension [Unknown]
  - Spinal cord injury [Unknown]
  - Gastrointestinal disorder [Unknown]
  - Vomiting [Unknown]
  - Inappropriate schedule of product administration [Unknown]
  - Gallbladder injury [Unknown]
  - Osteochondritis [Unknown]
  - Thyroid mass [Unknown]
  - Product use in unapproved indication [Unknown]
  - Cholelithiasis [Unknown]
  - Dyspnoea [Unknown]
  - Cholecystitis infective [Unknown]
  - Nausea [Unknown]
  - Pain [Unknown]
  - Haemobilia [Unknown]
  - Pancreatitis [Unknown]
  - Abdominal pain [Unknown]

NARRATIVE: CASE EVENT DATE: 20160406
